FAERS Safety Report 18486437 (Version 1)
Quarter: 2020Q4

REPORT INFORMATION
  Report Type: Spontaneous
  Country: US (occurrence: US)
  Receive Date: 20201110
  Receipt Date: 20201110
  Transmission Date: 20210114
  Serious: Yes (Hospitalization)
  Sender: FDA-Public Use
  Company Number: None

PATIENT
  Sex: Female

DRUGS (1)
  1. ACTEMRA [Suspect]
     Active Substance: TOCILIZUMAB
     Indication: AUTONOMIC NERVOUS SYSTEM IMBALANCE
     Dosage: ?          OTHER FREQUENCY:EVERY 4 WKS;?
     Route: 042
     Dates: start: 20201006

REACTIONS (1)
  - Hospitalisation [None]
